FAERS Safety Report 15603497 (Version 2)
Quarter: 2018Q4

REPORT INFORMATION
  Report Type: Spontaneous
  Country: FR (occurrence: FR)
  Receive Date: 20181109
  Receipt Date: 20181204
  Transmission Date: 20190205
  Serious: Yes (Death, Other)
  Sender: FDA-Public Use
  Company Number: FR-BAYER-2018-207065

PATIENT
  Sex: Male

DRUGS (2)
  1. BETAFERON [Suspect]
     Active Substance: INTERFERON BETA-1B
     Dosage: UNK
  2. BETACONNECT [Concomitant]
     Active Substance: DEVICE

REACTIONS (2)
  - Infarction [None]
  - Cardiogenic shock [Fatal]

NARRATIVE: CASE EVENT DATE: 2015
